FAERS Safety Report 4965130-4 (Version None)
Quarter: 2006Q1

REPORT INFORMATION
  Report Type: 
  Country: None (occurrence: None)
  Receive Date: 20060207
  Receipt Date: 20050309
  Transmission Date: 20060701
  Serious: Yes (Other)
  Sender: FDA-Public Use
  Company Number: HQWYE498723FEB05

PATIENT
  Age: 14 Year
  Sex: Female
  Weight: 81.72 kg

DRUGS (1)
  1. NORPLANT SYSTEM [Suspect]
     Indication: CONTRACEPTION
     Dosage: 6 CAPSULES, SUBCUTANEOUS
     Route: 058
     Dates: start: 19990101, end: 20050217

REACTIONS (19)
  - ABDOMINAL PAIN LOWER [None]
  - ABDOMINAL PAIN UPPER [None]
  - AMENORRHOEA [None]
  - ANXIETY [None]
  - APPLICATION SITE PAIN [None]
  - BACK PAIN [None]
  - BONE PAIN [None]
  - COITAL BLEEDING [None]
  - DEPRESSION [None]
  - DYSPHEMIA [None]
  - FATIGUE [None]
  - HEARING IMPAIRED [None]
  - INFERTILITY [None]
  - INTRACRANIAL PRESSURE INCREASED [None]
  - MENSTRUATION IRREGULAR [None]
  - MOOD SWINGS [None]
  - NERVOUSNESS [None]
  - PELVIC PAIN [None]
  - WEIGHT INCREASED [None]
